FAERS Safety Report 4373277-9 (Version None)
Quarter: 2004Q2

REPORT INFORMATION
  Report Type: 
  Country: None (occurrence: None)
  Receive Date: 20040608
  Receipt Date: 20040603
  Transmission Date: 20050107
  Serious: Yes (Other)
  Sender: FDA-Public Use
  Company Number: 20040506189(0)

PATIENT
  Age: 53 Year
  Sex: Female

DRUGS (8)
  1. RANITIDINE HYDROCHLORIDE [Suspect]
     Dosage: 300MG PER DAY
  2. FENTANYL [Suspect]
     Indication: SEDATION
     Dosage: .2MG SINGLE DOSE
     Route: 042
  3. CELECOXIB [Suspect]
  4. PROPOFOL [Concomitant]
     Dosage: 150MG PER DAY
  5. TRACRIUM [Concomitant]
     Indication: SEDATION
  6. FORANE [Concomitant]
     Indication: SEDATION
  7. ACESISTEM [Concomitant]
  8. MESALAZINE [Concomitant]

REACTIONS (2)
  - DEPRESSED LEVEL OF CONSCIOUSNESS [None]
  - RESPIRATORY DEPRESSION [None]
